FAERS Safety Report 10074548 (Version 1)
Quarter: 2014Q2

REPORT INFORMATION
  Report Type: Spontaneous
  Country: US (occurrence: US)
  Receive Date: 20140411
  Receipt Date: 20140411
  Transmission Date: 20141212
  Serious: No
  Sender: FDA-Public Use
  Company Number: US-SA-2014SA007220

PATIENT
  Age: 80 Year
  Sex: Female
  Weight: 79 kg

DRUGS (1)
  1. ALLEGRA D [Suspect]
     Indication: SINUSITIS
     Route: 048
     Dates: start: 20140108

REACTIONS (6)
  - Sneezing [Not Recovered/Not Resolved]
  - Cough [Not Recovered/Not Resolved]
  - Dry mouth [Unknown]
  - Insomnia [Unknown]
  - Drug ineffective [Unknown]
  - Extra dose administered [Unknown]
